FAERS Safety Report 18990504 (Version 5)
Quarter: 2021Q4

REPORT INFORMATION
  Report Type: Report from Study
  Country: CO (occurrence: CO)
  Receive Date: 20210310
  Receipt Date: 20211122
  Transmission Date: 20220303
  Serious: Yes (Hospitalization, Other)
  Sender: FDA-Public Use
  Company Number: NVSC2021CO025238

PATIENT
  Sex: Female

DRUGS (1)
  1. KISQALI [Suspect]
     Active Substance: RIBOCICLIB
     Indication: Breast cancer metastatic
     Dosage: 600 MG, QD
     Route: 048

REACTIONS (11)
  - Illness [Unknown]
  - Dizziness [Unknown]
  - Metastases to central nervous system [Unknown]
  - Urinary tract infection [Unknown]
  - Vomiting [Unknown]
  - Drug ineffective [Unknown]
  - Haematochezia [Unknown]
  - Thyroid disorder [Unknown]
  - Proctalgia [Unknown]
  - Defaecation disorder [Unknown]
  - Constipation [Unknown]
